FAERS Safety Report 12166799 (Version 1)
Quarter: 2016Q1

REPORT INFORMATION
  Report Type: Spontaneous
  Country: US (occurrence: US)
  Receive Date: 20160310
  Receipt Date: 20160310
  Transmission Date: 20160526
  Serious: Yes (Hospitalization)
  Sender: FDA-Public Use
  Company Number: US-BEH-2016059529

PATIENT
  Age: 48 Year
  Sex: Female
  Weight: 72 kg

DRUGS (29)
  1. AUGMENTIN [Concomitant]
     Active Substance: AMOXICILLIN\CLAVULANATE POTASSIUM
  2. CYMBALTA [Concomitant]
     Active Substance: DULOXETINE HYDROCHLORIDE
  3. PREDNISONE. [Concomitant]
     Active Substance: PREDNISONE
  4. VITAMIN D3 [Concomitant]
     Active Substance: CHOLECALCIFEROL
  5. PERFOROMIST [Concomitant]
     Active Substance: FORMOTEROL FUMARATE DIHYDRATE
  6. SPIRIVA [Concomitant]
     Active Substance: TIOTROPIUM BROMIDE MONOHYDRATE
  7. DIPHENHYDRAMINE. [Concomitant]
     Active Substance: DIPHENHYDRAMINE
  8. LMX [Concomitant]
     Active Substance: LIDOCAINE
  9. SUMATRIPTAN SUCCINATE. [Concomitant]
     Active Substance: SUMATRIPTAN SUCCINATE
  10. IBUPROFEN. [Concomitant]
     Active Substance: IBUPROFEN
  11. MEDROL [Concomitant]
     Active Substance: METHYLPREDNISOLONE
  12. OXYGEN. [Concomitant]
     Active Substance: OXYGEN
  13. LISINOPRIL. [Concomitant]
     Active Substance: LISINOPRIL
  14. SODIUM CHLORIDE. [Concomitant]
     Active Substance: SODIUM CHLORIDE
  15. AMITRIPTYLINE [Concomitant]
     Active Substance: AMITRIPTYLINE
  16. HCTZ [Concomitant]
     Active Substance: HYDROCHLOROTHIAZIDE
  17. MOBIC [Concomitant]
     Active Substance: MELOXICAM
  18. FOSAMAX [Concomitant]
     Active Substance: ALENDRONATE SODIUM
  19. ARMOUR THYROID [Concomitant]
     Active Substance: THYROID, PORCINE
  20. NORMAL SALINE [Concomitant]
     Active Substance: SODIUM CHLORIDE
  21. EPIPEN [Concomitant]
     Active Substance: EPINEPHRINE
  22. XANAX [Concomitant]
     Active Substance: ALPRAZOLAM
  23. PULMICORT TURBUHALER [Concomitant]
     Active Substance: BUDESONIDE
  24. ZEMAIRA [Suspect]
     Active Substance: .ALPHA.1-PROTEINASE INHIBITOR HUMAN
     Indication: ALPHA-1 ANTI-TRYPSIN DEFICIENCY
     Dosage: EXP: 27-APR-????
     Route: 042
  25. BUDESONIDE. [Concomitant]
     Active Substance: BUDESONIDE
  26. PROAIR HFA [Concomitant]
     Active Substance: ALBUTEROL SULFATE
  27. PRILOSEC [Concomitant]
     Active Substance: OMEPRAZOLE MAGNESIUM
  28. ALBUTEROL. [Concomitant]
     Active Substance: ALBUTEROL
  29. KETOROLAC [Concomitant]
     Active Substance: KETOROLAC\KETOROLAC TROMETHAMINE

REACTIONS (1)
  - Thyroid disorder [Unknown]

NARRATIVE: CASE EVENT DATE: 20160201
